FAERS Safety Report 23745986 (Version 1)
Quarter: 2024Q2

REPORT INFORMATION
  Report Type: Spontaneous
  Country: US (occurrence: US)
  Receive Date: 20240416
  Receipt Date: 20240416
  Transmission Date: 20240716
  Serious: Yes (Other)
  Sender: FDA-Public Use
  Company Number: US-GLAXOSMITHKLINE-US2024AMR046999

PATIENT

DRUGS (2)
  1. ZEJULA [Suspect]
     Active Substance: NIRAPARIB
     Indication: Ovarian cancer
     Dosage: 200 MG, QD
     Route: 048
     Dates: start: 20240304
  2. ZEJULA [Suspect]
     Active Substance: NIRAPARIB
     Dosage: 200 MG, QOD
     Dates: start: 20240401

REACTIONS (15)
  - Neuropathy peripheral [Not Recovered/Not Resolved]
  - Palpitations [Not Recovered/Not Resolved]
  - Headache [Not Recovered/Not Resolved]
  - Constipation [Not Recovered/Not Resolved]
  - Insomnia [Not Recovered/Not Resolved]
  - Dehydration [Unknown]
  - Dry eye [Not Recovered/Not Resolved]
  - Dry mouth [Not Recovered/Not Resolved]
  - Decreased appetite [Not Recovered/Not Resolved]
  - Taste disorder [Unknown]
  - Ageusia [Not Recovered/Not Resolved]
  - Fatigue [Not Recovered/Not Resolved]
  - Blood pressure increased [Not Recovered/Not Resolved]
  - Loss of personal independence in daily activities [Not Recovered/Not Resolved]
  - Inappropriate schedule of product administration [Unknown]

NARRATIVE: CASE EVENT DATE: 20240304
